FAERS Safety Report 23342668 (Version 2)
Quarter: 2024Q1

REPORT INFORMATION
  Report Type: Report from Study
  Country: US (occurrence: US)
  Receive Date: 20231227
  Receipt Date: 20240103
  Transmission Date: 20240410
  Serious: No
  Sender: FDA-Public Use
  Company Number: US-BIOVITRUM-2023-US-014966

PATIENT
  Age: 33 Year
  Sex: Male

DRUGS (1)
  1. DOPTELET [Suspect]
     Active Substance: AVATROMBOPAG MALEATE
     Indication: Immune thrombocytopenia
     Dosage: TAKE 1 TABLET BY MOUTH 1 TIME A DAY EXCEPT ON DAYS MONDAY, WEDNESDAY AND FRIDAY TAKE 2 TABLETS
     Route: 048
     Dates: start: 202309, end: 202309

REACTIONS (3)
  - Abdominal discomfort [Unknown]
  - Flatulence [Unknown]
  - Drug ineffective [Unknown]
